FAERS Safety Report 7673261-3 (Version None)
Quarter: 2011Q3

REPORT INFORMATION
  Report Type: 
  Country: None (occurrence: None)
  Receive Date: 20110810
  Receipt Date: 20110729
  Transmission Date: 20111222
  Serious: Yes (Other)
  Sender: FDA-Public Use
  Company Number: US-CELGENEUS-163-21880-11080118

PATIENT
  Sex: Female

DRUGS (9)
  1. METOPROLOL TARTRATE [Concomitant]
     Route: 065
  2. METFORMIN HCL [Concomitant]
     Route: 065
  3. DEXAMETHASONE [Concomitant]
     Route: 065
  4. REVLIMID [Suspect]
     Dosage: 15 MILLIGRAM
     Route: 048
     Dates: start: 20110421
  5. ACTOS [Concomitant]
     Route: 065
  6. LEVOTHYROXINE SODIUM [Concomitant]
     Route: 065
  7. ASPIR-81 [Concomitant]
     Route: 065
  8. LOVASTATIN [Concomitant]
     Route: 065
  9. RITALIN [Concomitant]
     Route: 065

REACTIONS (2)
  - DEMENTIA [None]
  - FATIGUE [None]
